FAERS Safety Report 7622490-3 (Version None)
Quarter: 2011Q3

REPORT INFORMATION
  Report Type: 
  Country: None (occurrence: None)
  Receive Date: 20110719
  Receipt Date: 20110719
  Transmission Date: 20111222
  Serious: No
  Sender: FDA-Public Use
  Company Number: None

PATIENT
  Age: 58 Year
  Sex: Female
  Weight: 72.5755 kg

DRUGS (1)
  1. GENTAMICIN [Suspect]
     Indication: OSTEOMYELITIS
     Dosage: INFUSION 1 X DAY IV
     Route: 042
     Dates: start: 20110127, end: 20110311

REACTIONS (4)
  - DIZZINESS [None]
  - OTOTOXICITY [None]
  - VESTIBULAR DISORDER [None]
  - BALANCE DISORDER [None]
